FAERS Safety Report 14533394 (Version 1)
Quarter: 2018Q1

REPORT INFORMATION
  Report Type: Spontaneous
  Country: FR (occurrence: FR)
  Receive Date: 20180215
  Receipt Date: 20180215
  Transmission Date: 20180509
  Serious: Yes (Life-Threatening)
  Sender: FDA-Public Use
  Company Number: FR-CIPLA LTD.-2018FR04400

PATIENT

DRUGS (1)
  1. SERTRALINE [Suspect]
     Active Substance: SERTRALINE HYDROCHLORIDE
     Indication: MAJOR DEPRESSION
     Dosage: 50 MG, PER DAY
     Route: 048
     Dates: end: 201612

REACTIONS (4)
  - Platelet aggregation abnormal [Recovered/Resolved]
  - Platelet function test abnormal [Recovered/Resolved]
  - Anaemia [Recovered/Resolved]
  - Epistaxis [Recovered/Resolved]

NARRATIVE: CASE EVENT DATE: 20151201
